FAERS Safety Report 14341425 (Version 1)
Quarter: 2018Q1

REPORT INFORMATION
  Report Type: Spontaneous
  Country: FR (occurrence: FR)
  Receive Date: 20180102
  Receipt Date: 20180102
  Transmission Date: 20180509
  Serious: Yes (Death)
  Sender: FDA-Public Use
  Company Number: FR-CONCORDIA PHARMACEUTICALS INC.-E2B_00009246

PATIENT
  Age: 87 Year
  Sex: Female

DRUGS (6)
  1. BISOPROLOL (HEMIFUMARATE DE) [Concomitant]
  2. DIGOXIN. [Suspect]
     Active Substance: DIGOXIN
     Indication: ATRIAL FIBRILLATION
     Dates: end: 20160607
  3. FENOFIBRATE. [Concomitant]
     Active Substance: FENOFIBRATE
  4. PREVISCAN 20 MG, COMPRIM? S?CABLE [Suspect]
     Active Substance: FLUINDIONE
     Indication: ATRIAL FIBRILLATION
     Route: 048
     Dates: end: 20160607
  5. CLONIDINE. [Suspect]
     Active Substance: CLONIDINE
     Indication: HYPERTENSION
     Dates: end: 20160607
  6. ZOPICLONE [Concomitant]
     Active Substance: ZOPICLONE

REACTIONS (1)
  - Retroperitoneal haematoma [Fatal]

NARRATIVE: CASE EVENT DATE: 20160608
